FAERS Safety Report 8599034-5 (Version None)
Quarter: 2012Q3

REPORT INFORMATION
  Report Type: 
  Country: None (occurrence: None)
  Receive Date: 20120816
  Receipt Date: 20120809
  Transmission Date: 20120928
  Serious: Yes (Hospitalization)
  Sender: FDA-Public Use
  Company Number: CZ-PFIZER INC-2012195911

PATIENT
  Sex: Male
  Weight: 90 kg

DRUGS (6)
  1. CORTISONE ACETATE [Concomitant]
     Indication: BLOOD CORTICOTROPHIN DECREASED
     Dosage: UNK
     Dates: start: 20040825
  2. GENOTROPIN [Suspect]
     Dosage: 0.3 MG, 7/WK
     Route: 058
     Dates: start: 20050906
  3. HYDROCORTISONE [Concomitant]
     Dosage: UNK
     Dates: start: 20040116
  4. TESTOSTERONE UNDECANOATE [Concomitant]
     Indication: BLOOD FOLLICLE STIMULATING HORMONE DECREASED
  5. TESTOSTERONE UNDECANOATE [Concomitant]
     Indication: BLOOD LUTEINISING HORMONE DECREASED
     Dosage: UNK
     Dates: start: 20040116
  6. LEVOTHYROXINE [Concomitant]
     Indication: BLOOD THYROID STIMULATING HORMONE DECREASED
     Dosage: UNK
     Dates: start: 20041230

REACTIONS (1)
  - SURGERY [None]
